FAERS Safety Report 8125513-0 (Version None)
Quarter: 2012Q1

REPORT INFORMATION
  Report Type: 
  Country: None (occurrence: None)
  Receive Date: 20120209
  Receipt Date: 20120202
  Transmission Date: 20120608
  Serious: Yes (Death)
  Sender: FDA-Public Use
  Company Number: GXBR2012US000599

PATIENT
  Age: 81 Year
  Sex: Female

DRUGS (1)
  1. ENOXAPARIN SODIUM [Suspect]
     Dosage: UNK DF, UNK

REACTIONS (1)
  - NEOPLASM MALIGNANT [None]
